FAERS Safety Report 6885573-1 (Version None)
Quarter: 2010Q3

REPORT INFORMATION
  Report Type: 
  Country: None (occurrence: None)
  Receive Date: 20100729
  Receipt Date: 20090306
  Transmission Date: 20110219
  Serious: Yes (Other)
  Sender: FDA-Public Use
  Company Number: US-PFIZER INC-2008155788

PATIENT
  Sex: Male
  Weight: 74.842 kg

DRUGS (4)
  1. CELEBREX [Suspect]
     Dosage: 200 MG, 1X/DAY
     Route: 048
     Dates: start: 20081205, end: 20081215
  2. LOVENOX [Suspect]
     Indication: THROMBOSIS PROPHYLAXIS
     Dosage: 40 MG, 1X/DAY
     Dates: start: 20081201
  3. CRESTOR [Concomitant]
  4. ACETAMINOPHEN [Concomitant]

REACTIONS (3)
  - ANAEMIA [None]
  - FAECES DISCOLOURED [None]
  - VISION BLURRED [None]
